FAERS Safety Report 9090632 (Version 1)
Quarter: 2013Q1

REPORT INFORMATION
  Report Type: Spontaneous
  Country: US (occurrence: US)
  Receive Date: 20130201
  Receipt Date: 20130201
  Transmission Date: 20140127
  Serious: No
  Sender: FDA-Public Use
  Company Number: US-PFIZER INC-2013037298

PATIENT
  Age: 71 Year
  Sex: Male
  Weight: 136.1 kg

DRUGS (3)
  1. VIAGRA [Suspect]
     Indication: ERECTILE DYSFUNCTION
     Dosage: 100 MG, AS NEEDED
     Route: 048
     Dates: end: 201207
  2. VIAGRA [Suspect]
     Dosage: 200 MG (TWO TABLETS OF 100MG), AS NEEDED
     Route: 048
     Dates: start: 201207, end: 201301
  3. PROTONIX [Concomitant]
     Indication: GASTRIC DISORDER
     Dosage: UNK

REACTIONS (3)
  - Off label use [Unknown]
  - Suspected counterfeit product [Unknown]
  - Drug ineffective [Unknown]
